FAERS Safety Report 5664032-8 (Version None)
Quarter: 2008Q1

REPORT INFORMATION
  Report Type: 
  Country: None (occurrence: None)
  Receive Date: 20080314
  Receipt Date: 20080304
  Transmission Date: 20080703
  Serious: Yes (Hospitalization, Other)
  Sender: FDA-Public Use
  Company Number: PHHY2008IN01872

PATIENT
  Age: 57 Year
  Sex: Female
  Weight: 60 kg

DRUGS (6)
  1. DEXA [Suspect]
     Dosage: 4 MG, UNK
     Route: 048
     Dates: start: 20080212, end: 20080215
  2. THALIDOMIDE [Concomitant]
     Dosage: 50 MG, UNK
     Route: 048
     Dates: start: 20080212
  3. CARVEDILOL [Concomitant]
     Indication: CORONARY ARTERY DISEASE
     Dosage: 3.125 MG SINCE 4 MONTHS
     Route: 048
  4. NICORANDIL [Concomitant]
     Indication: CORONARY ARTERY DISEASE
     Dosage: 5 MG SINCE 4 MONTHS
     Route: 048
  5. SORBITRATE [Concomitant]
     Indication: ANGINA UNSTABLE
     Dosage: 5 MG, SOS SINCE 2 MONTHS
     Route: 048
  6. ZOMETA [Suspect]
     Dosage: 4.4 ML, UNK
     Dates: start: 20080212

REACTIONS (13)
  - ALANINE AMINOTRANSFERASE INCREASED [None]
  - ASPARTATE AMINOTRANSFERASE INCREASED [None]
  - BLOOD BILIRUBIN INCREASED [None]
  - BLOOD POTASSIUM DECREASED [None]
  - BLOOD UREA INCREASED [None]
  - DYSPNOEA [None]
  - HAEMOGLOBIN DECREASED [None]
  - LOWER RESPIRATORY TRACT INFECTION [None]
  - PLATELET COUNT DECREASED [None]
  - PRODUCTIVE COUGH [None]
  - PROTEIN TOTAL INCREASED [None]
  - PYREXIA [None]
  - WHITE BLOOD CELL COUNT DECREASED [None]
